FAERS Safety Report 11079154 (Version 1)
Quarter: 2015Q2

REPORT INFORMATION
  Report Type: Report from Study
  Country: IT (occurrence: None)
  Receive Date: 20150428
  Receipt Date: 20150428
  Transmission Date: 20150821
  Serious: Yes (Hospitalization, Other)
  Sender: FDA-Public Use
  Company Number: B0970356A

PATIENT
  Age: 57 Year
  Sex: Male
  Weight: 88.6 kg

DRUGS (5)
  1. NORVASC [Concomitant]
     Active Substance: AMLODIPINE BESYLATE
  2. COMBIVIR (LAMIVUDINE + ZIDOVUDINE) [Concomitant]
  3. MARAVIROC (MARAVIROC) UNKNOWN [Suspect]
     Active Substance: MARAVIROC
     Indication: HIV TEST
     Dosage: 150 MG, 2D, ORAL
     Route: 048
     Dates: start: 20080325
  4. PREZISTA [Concomitant]
     Active Substance: DARUNAVIR ETHANOLATE
  5. NORVIR [Concomitant]
     Active Substance: RITONAVIR

REACTIONS (1)
  - Papillary thyroid cancer [None]

NARRATIVE: CASE EVENT DATE: 20140116
